FAERS Safety Report 19597801 (Version 1)
Quarter: 2021Q3

REPORT INFORMATION
  Report Type: Report from Study
  Country: IE (occurrence: IE)
  Receive Date: 20210722
  Receipt Date: 20210722
  Transmission Date: 20211014
  Serious: Yes (Hospitalization)
  Sender: FDA-Public Use
  Company Number: IE-ASTRAZENECA-2021A625691

PATIENT
  Age: 60 Year
  Sex: Male

DRUGS (7)
  1. FASENRA [Suspect]
     Active Substance: BENRALIZUMAB
     Indication: ASTHMA
     Route: 058
     Dates: start: 20201229
  2. AZYTHROMYCIN [Concomitant]
     Active Substance: AZITHROMYCIN ANHYDROUS
     Dosage: 250 MG
  3. PREDNISLONE [Concomitant]
     Route: 050
  4. SPIOLTO [Concomitant]
     Active Substance: OLODATEROL HYDROCHLORIDE\TIOTROPIUM BROMIDE MONOHYDRATE
     Dosage: 5 MCG5UG/INHAL
     Route: 055
  5. VENTOLIN [Concomitant]
     Active Substance: ALBUTEROL SULFATE
     Dosage: 200.0UG AS REQUIRED200UG/INHAL
     Route: 055
  6. DYMISTA [Concomitant]
     Active Substance: AZELASTINE HYDROCHLORIDE\FLUTICASONE PROPIONATE
     Dosage: 274UG/INHAL
     Route: 050
  7. ALVESCO [Suspect]
     Active Substance: CICLESONIDE
     Dosage: 320 MCG640UG/INHAL
     Route: 065

REACTIONS (2)
  - Fluid overload [Unknown]
  - Lower respiratory tract infection [Recovering/Resolving]

NARRATIVE: CASE EVENT DATE: 20210609
